FAERS Safety Report 10247443 (Version 1)
Quarter: 2014Q2

REPORT INFORMATION
  Report Type: Spontaneous
  Country: SG (occurrence: SG)
  Receive Date: 20140619
  Receipt Date: 20140619
  Transmission Date: 20141212
  Serious: Yes (Other)
  Sender: FDA-Public Use
  Company Number: SG-UCBSA-2014002566

PATIENT
  Age: 47 Year
  Sex: Male

DRUGS (3)
  1. OMEPRAZOLE [Suspect]
     Dosage: UNKNOWN DOSE
     Route: 048
  2. PIPERACILLIN AND TAZOBACTAM [Suspect]
     Dosage: UNKNOWN DOSE
     Route: 042
  3. MEROPENEM [Suspect]
     Dosage: UNKNOWN DOSE
     Route: 042

REACTIONS (1)
  - Dermatitis exfoliative [Unknown]
